FAERS Safety Report 15262940 (Version 2)
Quarter: 2018Q3

REPORT INFORMATION
  Report Type: Report from Study
  Country: None (occurrence: GR)
  Receive Date: 20180810
  Receipt Date: 20180813
  Transmission Date: 20181010
  Serious: Yes (Death)
  Sender: FDA-Public Use
  Company Number: GR-ABBVIE-18S-066-2443365-00

PATIENT
  Age: 83 Year
  Sex: Female
  Weight: 48 kg

DRUGS (3)
  1. DUODOPA [Suspect]
     Active Substance: CARBIDOPA\LEVODOPA
     Indication: PARKINSON^S DISEASE
     Dosage: MORNING DOSE:3.0ML; CONTINUOUS RATE:0.9ML/H; EXTRA DOSE:0.9ML
     Route: 050
     Dates: start: 20170706
  2. GALOPRAN [Concomitant]
     Indication: DEPRESSION
     Route: 048
  3. REQUIP XL [Concomitant]
     Active Substance: ROPINIROLE HYDROCHLORIDE
     Indication: PARKINSON^S DISEASE
     Route: 048
     Dates: start: 20170908

REACTIONS (3)
  - Dyspnoea [Fatal]
  - Embolism [Fatal]
  - Contusion [Fatal]

NARRATIVE: CASE EVENT DATE: 20180803
